FAERS Safety Report 8591686-9 (Version None)
Quarter: 2012Q3

REPORT INFORMATION
  Report Type: 
  Country: None (occurrence: None)
  Receive Date: 20120814
  Receipt Date: 20120809
  Transmission Date: 20120928
  Serious: Yes (Life-Threatening, Hospitalization, Other)
  Sender: FDA-Public Use
  Company Number: MX-NOVOPROD-343774

PATIENT
  Age: 33 Year
  Sex: Female
  Weight: 80.9 kg

DRUGS (7)
  1. VICTOZA [Suspect]
     Indication: OBESITY
     Dosage: 0.6 MG, QD
     Route: 058
     Dates: start: 20110727
  2. VICTOZA [Suspect]
     Dosage: 3 MG, QD
     Route: 058
     Dates: start: 20110823, end: 20120129
  3. ESTROGEN [Concomitant]
  4. VICTOZA [Suspect]
     Dosage: 1.2 MG, QD
     Route: 058
     Dates: start: 20120802
  5. VICTOZA [Suspect]
     Dosage: 1.8 MG, QD
     Route: 058
     Dates: start: 20110808
  6. VICTOZA [Suspect]
     Dosage: 2.4 MG, QD
     Route: 058
     Dates: start: 20110815
  7. VICTOZA [Suspect]
     Dosage: 3 MG, QD
     Route: 058
     Dates: start: 20120203

REACTIONS (1)
  - CHOLELITHIASIS [None]
